FAERS Safety Report 9701790 (Version 6)
Quarter: 2014Q1

REPORT INFORMATION
  Report Type: Report from Study
  Country: TR (occurrence: TR)
  Receive Date: 20131121
  Receipt Date: 20140324
  Transmission Date: 20141002
  Serious: Yes (Hospitalization, Other)
  Sender: FDA-Public Use
  Company Number: PHHY2013TR131705

PATIENT
  Age: 49 Year
  Sex: Female
  Weight: 46 kg

DRUGS (3)
  1. GILENYA [Suspect]
     Indication: MULTIPLE SCLEROSIS
     Dosage: 05 MG, QD
     Route: 048
     Dates: start: 20130725, end: 201312
  2. LIORESAL [Concomitant]
     Indication: MUSCLE SPASMS
     Dosage: 10 MG, UNK
     Route: 048
     Dates: start: 2003
  3. ASPIRIN [Concomitant]

REACTIONS (22)
  - Adenocarcinoma gastric [Not Recovered/Not Resolved]
  - Metastases to ovary [Unknown]
  - Metastases to liver [Unknown]
  - Metastases to kidney [Unknown]
  - Metastases to peritoneum [Unknown]
  - Malignant ascites [Unknown]
  - Hydronephrosis [Unknown]
  - Abdominal distension [Unknown]
  - Pulmonary embolism [Recovered/Resolved]
  - Pleural effusion [Unknown]
  - Deep vein thrombosis [Unknown]
  - Vomiting [Unknown]
  - Nausea [Unknown]
  - Decubitus ulcer [Unknown]
  - Gastric ulcer [Unknown]
  - Rales [Unknown]
  - Joint swelling [Recovered/Resolved]
  - Oedema peripheral [Recovered/Resolved]
  - Chest pain [Unknown]
  - General physical health deterioration [Recovering/Resolving]
  - Pyrexia [Recovered/Resolved]
  - Burning sensation [Unknown]
